FAERS Safety Report 23808338 (Version 1)
Quarter: 2024Q2

REPORT INFORMATION
  Report Type: Spontaneous
  Country: US (occurrence: None)
  Receive Date: 20240501
  Receipt Date: 20240501
  Transmission Date: 20240716
  Serious: Yes (Life-Threatening, Hospitalization)
  Sender: FDA-Public Use
  Company Number: None

PATIENT
  Age: 43 Year
  Sex: Male

DRUGS (1)
  1. LISINOPRIL [Suspect]
     Active Substance: LISINOPRIL
     Indication: Hypertension
     Dates: start: 20221109, end: 20231221

REACTIONS (5)
  - Angioedema [None]
  - Dysphagia [None]
  - Dyspnoea [None]
  - Swollen tongue [None]
  - Pruritus [None]

NARRATIVE: CASE EVENT DATE: 20240131
